FAERS Safety Report 18126392 (Version 3)
Quarter: 2020Q3

REPORT INFORMATION
  Report Type: Spontaneous
  Country: JP (occurrence: JP)
  Receive Date: 20200808
  Receipt Date: 20200922
  Transmission Date: 20201103
  Serious: Yes (Hospitalization, Other)
  Sender: FDA-Public Use
  Company Number: JP-MACLEODS PHARMACEUTICALS US LTD-MAC2020027533

PATIENT

DRUGS (8)
  1. ARIPIPRAZOLE. [Suspect]
     Active Substance: ARIPIPRAZOLE
     Indication: SCHIZOPHRENIA
     Dosage: UNK, AT AROUND 40 YEARS
     Route: 048
  2. DOSULEPIN HYDROCHLORIDE [Suspect]
     Active Substance: DOTHIEPIN HYDROCHLORIDE
     Indication: SCHIZOPHRENIA
     Dosage: UNK, SINCE 25 YEAR OLD
     Route: 065
  3. FLUVOXAMINE MALEATE. [Suspect]
     Active Substance: FLUVOXAMINE MALEATE
     Indication: SCHIZOPHRENIA
     Dosage: UNK, AT AROUND 30 YEARS
     Route: 065
  4. CARPIPRAMINE [Suspect]
     Active Substance: CARPIPRAMINE
     Indication: SCHIZOPHRENIA
     Dosage: UNK, SINCE 25 YEAR OLD
     Route: 065
  5. CLOMIPRAMINE HYDROCHLORIDE. [Suspect]
     Active Substance: CLOMIPRAMINE HYDROCHLORIDE
     Indication: SCHIZOPHRENIA
     Dosage: UNK, AT AROUND 30 YEARS
     Route: 065
  6. BLONANSERIN [Suspect]
     Active Substance: BLONANSERIN
     Indication: SCHIZOPHRENIA
     Dosage: UNK, AT AROUND 40 YEARS
     Route: 065
  7. OLANZAPINE 5 MG [Suspect]
     Active Substance: OLANZAPINE
     Indication: SCHIZOPHRENIA
     Dosage: 5 MILLIGRAM, QD, AT AROUND 30 YEARS
     Route: 048
  8. BIPERIDEN HYDROCHLORIDE [Suspect]
     Active Substance: BIPERIDEN HYDROCHLORIDE
     Indication: SCHIZOPHRENIA
     Dosage: 1 MILLIGRAM, QD, 25 YEAR OLD
     Route: 048

REACTIONS (6)
  - Dysarthria [Unknown]
  - Torticollis [Not Recovered/Not Resolved]
  - Cerebellar ataxia [Unknown]
  - Chorea [Not Recovered/Not Resolved]
  - Cerebellar atrophy [Unknown]
  - Early onset primary dystonia [Not Recovered/Not Resolved]
